FAERS Safety Report 6157471-2 (Version None)
Quarter: 2009Q2

REPORT INFORMATION
  Report Type: 
  Country: None (occurrence: None)
  Receive Date: 20090416
  Receipt Date: 20090409
  Transmission Date: 20091009
  Serious: Yes (Other)
  Sender: FDA-Public Use
  Company Number: PHHY2009GB11477

PATIENT
  Sex: Male

DRUGS (1)
  1. TOBI [Suspect]

REACTIONS (4)
  - BRONCHOSPASM [None]
  - DYSPNOEA [None]
  - OEDEMA PERIPHERAL [None]
  - WHEEZING [None]
